FAERS Safety Report 10511317 (Version 1)
Quarter: 2014Q3

REPORT INFORMATION
  Report Type: Spontaneous
  Country: US (occurrence: None)
  Receive Date: 20140924
  Receipt Date: 20140924
  Transmission Date: 20150326
  Serious: Yes (Death, Life-Threatening)
  Sender: FDA-Public Use
  Company Number: 2014STPI000136

PATIENT
  Age: 8 Year
  Sex: Female
  Weight: 28 kg

DRUGS (1)
  1. MATULANE [Suspect]
     Active Substance: PROCARBAZINE HYDROCHLORIDE
     Indication: GLIOBLASTOMA MULTIFORME
     Route: 048
     Dates: start: 20140205, end: 20140305

REACTIONS (2)
  - Malignant neoplasm progression [None]
  - Cardio-respiratory arrest [None]

NARRATIVE: CASE EVENT DATE: 20140318
